FAERS Safety Report 7345196-7 (Version None)
Quarter: 2011Q1

REPORT INFORMATION
  Report Type: 
  Country: None (occurrence: None)
  Receive Date: 20110310
  Receipt Date: 20110307
  Transmission Date: 20110831
  Serious: Yes (Other)
  Sender: FDA-Public Use
  Company Number: US-PFIZER INC-2011049911

PATIENT
  Sex: Female
  Weight: 74.83 kg

DRUGS (3)
  1. IBUPROFEN [Suspect]
     Dosage: 800 MG, 1X/DAY
     Route: 048
     Dates: start: 20100801, end: 20100801
  2. PRILOSEC [Concomitant]
     Dosage: 20 MG, 1X/DAY
     Route: 048
  3. PRAVASTATIN [Concomitant]
     Indication: BLOOD CHOLESTEROL ABNORMAL
     Dosage: 40 MG, 1X/DAY

REACTIONS (4)
  - EYE SWELLING [None]
  - LIP SWELLING [None]
  - CHEST DISCOMFORT [None]
  - SWOLLEN TONGUE [None]
